FAERS Safety Report 20058405 (Version 1)
Quarter: 2021Q4

REPORT INFORMATION
  Report Type: Spontaneous
  Country: US (occurrence: None)
  Receive Date: 20211111
  Receipt Date: 20211111
  Transmission Date: 20220303
  Serious: No
  Sender: FDA-Public Use
  Company Number: None

PATIENT

DRUGS (2)
  1. BISACODYL [Suspect]
     Active Substance: BISACODYL
     Indication: Product used for unknown indication
     Route: 048
  2. BISOPROLOL FUMARATE [Suspect]
     Active Substance: BISOPROLOL FUMARATE
     Indication: Product used for unknown indication

REACTIONS (8)
  - Product dispensing error [None]
  - Drug monitoring procedure not performed [None]
  - Wrong product administered [None]
  - Hypotension [None]
  - Bradycardia [None]
  - Dizziness [None]
  - Nausea [None]
  - Diplopia [None]
